FAERS Safety Report 7539431-X (Version None)
Quarter: 2011Q2

REPORT INFORMATION
  Report Type: 
  Country: None (occurrence: None)
  Receive Date: 20110610
  Receipt Date: 20110606
  Transmission Date: 20111010
  Serious: Yes (Other)
  Sender: FDA-Public Use
  Company Number: US-PFIZER INC-2011123412

PATIENT
  Sex: Male
  Weight: 94.8 kg

DRUGS (4)
  1. ATENOLOL [Concomitant]
     Indication: HYPERTENSION
     Dosage: UNK
  2. LYRICA [Suspect]
     Indication: NEUROPATHY PERIPHERAL
     Dosage: 100 MG, 3X/DAY
     Route: 048
     Dates: start: 20110528
  3. AMBIEN [Interacting]
     Indication: SLEEP DISORDER
     Dosage: UNK
  4. LISINOPRIL [Concomitant]
     Indication: HYPERTENSION
     Dosage: UNK

REACTIONS (5)
  - FALL [None]
  - COORDINATION ABNORMAL [None]
  - CONSTIPATION [None]
  - GAIT DISTURBANCE [None]
  - DRUG INTERACTION [None]
